FAERS Safety Report 10273331 (Version 3)
Quarter: 2014Q3

REPORT INFORMATION
  Report Type: Spontaneous
  Country: SE (occurrence: SE)
  Receive Date: 20140702
  Receipt Date: 20140728
  Transmission Date: 20150326
  Serious: Yes (Other)
  Sender: FDA-Public Use
  Company Number: SE-JNJFOC-20140700195

PATIENT
  Age: 61 Year
  Sex: Male

DRUGS (9)
  1. OLYSIO [Suspect]
     Active Substance: SIMEPREVIR
     Indication: CHRONIC HEPATITIS C
     Route: 065
     Dates: start: 20140603
  2. FURIX [Concomitant]
     Active Substance: FUROSEMIDE
  3. SPIRONOLACTONE. [Concomitant]
     Active Substance: SPIRONOLACTONE
  4. METOPROLOL [Concomitant]
     Active Substance: METOPROLOL
  5. COPEGUS [Concomitant]
     Active Substance: RIBAVIRIN
  6. KALCIPOS [Concomitant]
     Active Substance: CALCIUM CARBONATE
  7. SOVALDI [Concomitant]
     Active Substance: SOFOSBUVIR
  8. IMOVANE [Concomitant]
     Active Substance: ZOPICLONE
  9. SPIRIVA [Concomitant]
     Active Substance: TIOTROPIUM BROMIDE MONOHYDRATE

REACTIONS (2)
  - Photosensitivity reaction [Recovered/Resolved]
  - Solar dermatitis [Recovered/Resolved]

NARRATIVE: CASE EVENT DATE: 20140626
